FAERS Safety Report 6465371-3 (Version None)
Quarter: 2009Q4

REPORT INFORMATION
  Report Type: 
  Country: None (occurrence: None)
  Receive Date: 20091201
  Receipt Date: 20090629
  Transmission Date: 20100525
  Serious: No
  Sender: FDA-Public Use
  Company Number: US-AMGEN-KDL292747

PATIENT
  Sex: Female

DRUGS (2)
  1. ENBREL [Suspect]
     Indication: RHEUMATOID ARTHRITIS
     Route: 058
     Dates: start: 20070709, end: 20090115
  2. METHOTREXATE [Concomitant]
     Route: 048

REACTIONS (4)
  - ARTHRALGIA [None]
  - ERYTHEMA [None]
  - FEELING HOT [None]
  - JOINT INJURY [None]
